FAERS Safety Report 13449627 (Version 9)
Quarter: 2018Q2

REPORT INFORMATION
  Report Type: Report from Study
  Country: US (occurrence: US)
  Receive Date: 20170417
  Receipt Date: 20180605
  Transmission Date: 20180711
  Serious: Yes (Hospitalization, Other)
  Sender: FDA-Public Use
  Company Number: US-ACTELION-A-NJ2017-152523

PATIENT
  Age: 45 Year
  Sex: Female

DRUGS (5)
  1. SILDENAFIL. [Concomitant]
     Active Substance: SILDENAFIL
     Dosage: 60 UNK, TID
  2. MYCOFENOLAAT MOFETIL [Concomitant]
     Active Substance: MYCOPHENOLATE MOFETIL
  3. OPSUMIT [Suspect]
     Active Substance: MACITENTAN
     Indication: PULMONARY HYPERTENSION
     Dosage: 10 MG, QD
     Route: 048
     Dates: start: 20160229
  4. URSODIOL. [Concomitant]
     Active Substance: URSODIOL
     Dosage: 250/500, MG BID
  5. ATORVASTATIN [Concomitant]
     Active Substance: ATORVASTATIN
     Dosage: 20 UNK, UNK

REACTIONS (22)
  - Condition aggravated [Unknown]
  - Respiratory failure [Unknown]
  - Confusional state [Recovering/Resolving]
  - Hepatic failure [Unknown]
  - Septic shock [Unknown]
  - Diarrhoea haemorrhagic [Unknown]
  - Lower gastrointestinal haemorrhage [Unknown]
  - Cholangitis [Unknown]
  - Abdominal pain [Unknown]
  - Hepatic encephalopathy [Unknown]
  - Bile duct stenosis [Unknown]
  - Blood creatine increased [Unknown]
  - Ammonia increased [Recovered/Resolved]
  - Rectal haemorrhage [Unknown]
  - Anaemia of chronic disease [Unknown]
  - Biliary dilatation [Unknown]
  - Bile duct stone [Unknown]
  - Cholangiostomy [Unknown]
  - Nausea [Recovered/Resolved]
  - Acute kidney injury [Unknown]
  - Vomiting [Recovered/Resolved]
  - Urinary tract infection [Unknown]

NARRATIVE: CASE EVENT DATE: 201612
